FAERS Safety Report 24465857 (Version 1)
Quarter: 2024Q4

REPORT INFORMATION
  Report Type: Report from Study
  Country: US (occurrence: US)
  Receive Date: 20241018
  Receipt Date: 20241018
  Transmission Date: 20250115
  Serious: No
  Sender: ROCHE
  Company Number: US-ROCHE-3537015

PATIENT
  Age: 49 Year
  Sex: Male
  Weight: 105.69 kg

DRUGS (2)
  1. XOLAIR [Suspect]
     Active Substance: OMALIZUMAB
     Indication: Asthma
     Dosage: INJECTION ;ONGOING: NO
     Route: 058
     Dates: start: 2023
  2. XOLAIR [Suspect]
     Active Substance: OMALIZUMAB
     Dosage: EVERY 2 WEEKS 30 DAYS.
     Route: 058

REACTIONS (1)
  - Dyspnoea [Not Recovered/Not Resolved]

NARRATIVE: CASE EVENT DATE: 20240201
